FAERS Safety Report 7679714-6 (Version None)
Quarter: 2011Q3

REPORT INFORMATION
  Report Type: 
  Country: None (occurrence: None)
  Receive Date: 20110808
  Receipt Date: 20110728
  Transmission Date: 20111222
  Serious: Yes (Disabling)
  Sender: FDA-Public Use
  Company Number: DSA_47316_2011

PATIENT
  Age: 81 Year
  Sex: Female

DRUGS (5)
  1. ASPIRIN [Concomitant]
  2. ZESTORETIC [Concomitant]
  3. DILTIAZEM HYDROCHLORIDE [Suspect]
     Indication: HYPERTENSION
     Dosage: (300 MG QD ORAL) (200 MG QD ORAL)
     Route: 048
     Dates: start: 20020101, end: 20070101
  4. DILTIAZEM HYDROCHLORIDE [Suspect]
     Indication: HYPERTENSION
     Dosage: (300 MG QD ORAL) (200 MG QD ORAL)
     Route: 048
     Dates: start: 20070101, end: 20110301
  5. NITROGLYCERIN [Concomitant]

REACTIONS (3)
  - AKINESIA [None]
  - MUSCULOSKELETAL STIFFNESS [None]
  - GAIT DISTURBANCE [None]
